FAERS Safety Report 5777050-6 (Version None)
Quarter: 2008Q2

REPORT INFORMATION
  Report Type: 
  Country: None (occurrence: None)
  Receive Date: 20080617
  Receipt Date: 20080617
  Transmission Date: 20081010
  Serious: Yes (Hospitalization)
  Sender: FDA-Public Use
  Company Number: None

PATIENT
  Age: 67 Year
  Sex: Female

DRUGS (2)
  1. AMPICILLIN [Suspect]
     Indication: PROPHYLAXIS
     Dosage: 2GM PO X 1
     Route: 048
     Dates: start: 20080408
  2. CIPROFLOXACIN [Suspect]
     Indication: PROPHYLAXIS
     Dosage: 1 GM PO X 1
     Route: 048
     Dates: start: 20080408

REACTIONS (1)
  - ANAPHYLACTIC REACTION [None]
